FAERS Safety Report 7518304-2 (Version None)
Quarter: 2011Q2

REPORT INFORMATION
  Report Type: 
  Country: None (occurrence: None)
  Receive Date: 20110512
  Receipt Date: 20110228
  Transmission Date: 20111010
  Serious: No
  Sender: FDA-Public Use
  Company Number: 1000019030

PATIENT
  Age: 48 Year
  Sex: Male

DRUGS (4)
  1. ROPINIROLE [Concomitant]
  2. PAROXETINE (PAROXETINE) (PAROXETINE) [Concomitant]
  3. SAVELLA [Suspect]
     Indication: RADICULAR PAIN
     Dosage: 100 MG (50 MG, 2 IN 1 D), ORAL
     Route: 048
     Dates: start: 20110214, end: 20110228
  4. TRAMADOL HCL [Concomitant]

REACTIONS (2)
  - DYSURIA [None]
  - TESTICULAR OEDEMA [None]
